FAERS Safety Report 13610205 (Version 13)
Quarter: 2020Q1

REPORT INFORMATION
  Report Type: Spontaneous
  Country: GB (occurrence: GB)
  Receive Date: 20170604
  Receipt Date: 20200318
  Transmission Date: 20200409
  Serious: Yes (Hospitalization, Other)
  Sender: FDA-Public Use
  Company Number: GB-MYLANLABS-2016M1036582

PATIENT
  Age: 28 Year
  Sex: Male

DRUGS (1)
  1. CLOZARIL [Suspect]
     Active Substance: CLOZAPINE
     Indication: SCHIZOPHRENIA
     Dosage: UNK
     Route: 048
     Dates: start: 20110203, end: 20200304

REACTIONS (25)
  - Mean cell volume increased [Recovering/Resolving]
  - Lung disorder [Unknown]
  - C-reactive protein increased [Not Recovered/Not Resolved]
  - Pneumonia [Unknown]
  - Urinary tract infection [Unknown]
  - Mean cell haemoglobin increased [Unknown]
  - Haemoglobin decreased [Not Recovered/Not Resolved]
  - White blood cell count increased [Recovered/Resolved]
  - Blood sodium increased [Recovered/Resolved]
  - Blood urea decreased [Not Recovered/Not Resolved]
  - Thrombocytopenia [Recovering/Resolving]
  - Mean cell haemoglobin concentration decreased [Unknown]
  - Liver function test abnormal [Not Recovered/Not Resolved]
  - Blood phosphorus decreased [Recovered/Resolved]
  - Prothrombin time prolonged [Not Recovered/Not Resolved]
  - Red blood cell count decreased [Not Recovered/Not Resolved]
  - Liver disorder [Unknown]
  - Neutrophil count increased [Recovered/Resolved]
  - Full blood count abnormal [Unknown]
  - Blood calcium decreased [Not Recovered/Not Resolved]
  - Blood creatinine decreased [Not Recovered/Not Resolved]
  - Monocyte count increased [Recovering/Resolving]
  - Blood magnesium decreased [Unknown]
  - Haematocrit decreased [Not Recovered/Not Resolved]
  - Blood albumin decreased [Not Recovered/Not Resolved]

NARRATIVE: CASE EVENT DATE: 20130827
